FAERS Safety Report 8600334-0 (Version None)
Quarter: 2012Q3

REPORT INFORMATION
  Report Type: 
  Country: None (occurrence: None)
  Receive Date: 20120817
  Receipt Date: 20120607
  Transmission Date: 20120928
  Serious: No
  Sender: FDA-Public Use
  Company Number: US-009507513-2012SP029560

PATIENT

DRUGS (1)
  1. IMPLANON [Suspect]
     Dosage: UNK
     Route: 059
     Dates: start: 20111001

REACTIONS (3)
  - HAEMOGLOBIN DECREASED [None]
  - MENORRHAGIA [None]
  - AMENORRHOEA [None]
